FAERS Safety Report 10003729 (Version 1)
Quarter: 2014Q1

REPORT INFORMATION
  Report Type: Spontaneous
  Country: FR (occurrence: FR)
  Receive Date: 20140312
  Receipt Date: 20140312
  Transmission Date: 20141002
  Serious: Yes (Other)
  Sender: FDA-Public Use
  Company Number: FR-ASTRAZENECA-2014SE16432

PATIENT
  Age: 43 Year
  Sex: Male

DRUGS (2)
  1. CRESTOR [Suspect]
     Route: 048
  2. TAHOR [Suspect]
     Route: 065

REACTIONS (2)
  - Liver disorder [Unknown]
  - Transaminases increased [Unknown]
